FAERS Safety Report 17030888 (Version 1)
Quarter: 2019Q4

REPORT INFORMATION
  Report Type: Report from Study
  Country: US (occurrence: US)
  Receive Date: 20191114
  Receipt Date: 20191114
  Transmission Date: 20200122
  Serious: Yes (Other)
  Sender: FDA-Public Use
  Company Number: US-EMD SERONO-9124712

PATIENT
  Sex: Female

DRUGS (2)
  1. MAVENCLAD [Suspect]
     Active Substance: CLADRIBINE
     Dosage: YEAR 1 CYCLE 2 THERAPY.
     Route: 048
     Dates: start: 20190827, end: 20190831
  2. MAVENCLAD [Suspect]
     Active Substance: CLADRIBINE
     Indication: MULTIPLE SCLEROSIS
     Dosage: YEAR 1 CYCLE 1 THERAPY.
     Route: 048
     Dates: start: 20190731

REACTIONS (2)
  - White blood cell count decreased [Unknown]
  - Lymphocyte percentage decreased [Unknown]
